FAERS Safety Report 17883117 (Version 2)
Quarter: 2020Q2

REPORT INFORMATION
  Report Type: Spontaneous
  Country: US (occurrence: US)
  Receive Date: 20200611
  Receipt Date: 20200616
  Transmission Date: 20200714
  Serious: No
  Sender: FDA-Public Use
  Company Number: NVSC2020US162265

PATIENT
  Age: 82 Year
  Sex: Female

DRUGS (2)
  1. SIGNIFOR LAR [Suspect]
     Active Substance: PASIREOTIDE PAMOATE
     Indication: INSULINOMA
     Dosage: 20 MG
     Route: 030
     Dates: start: 2019, end: 202002
  2. SIGNIFOR LAR [Suspect]
     Active Substance: PASIREOTIDE PAMOATE
     Dosage: 10 MG
     Route: 030

REACTIONS (3)
  - Blood glucose increased [Unknown]
  - Off label use [Unknown]
  - Glycosylated haemoglobin increased [Unknown]
